FAERS Safety Report 12317689 (Version 1)
Quarter: 2016Q2

REPORT INFORMATION
  Report Type: Spontaneous
  Country: US (occurrence: US)
  Receive Date: 20160429
  Receipt Date: 20160429
  Transmission Date: 20160815
  Serious: No
  Sender: FDA-Public Use
  Company Number: US-BAYER-2016-077967

PATIENT
  Age: 32 Year
  Sex: Female
  Weight: 46.26 kg

DRUGS (3)
  1. ALKA-SELTZER PLUS COLD + COUGH FORMULA CITRUS [Suspect]
     Active Substance: ASPIRIN\CHLORPHENIRAMINE MALEATE\DEXTROMETHORPHAN HYDROBROMIDE\PHENYLEPHRINE BITARTRATE
     Indication: EYE PRURITUS
  2. CLARITIN REDITABS [Suspect]
     Active Substance: LORATADINE
     Indication: SEASONAL ALLERGY
     Dosage: 1 DF, ONCE
     Route: 048
     Dates: start: 20160419, end: 20160419
  3. ALKA-SELTZER PLUS COLD + COUGH FORMULA CITRUS [Suspect]
     Active Substance: ASPIRIN\CHLORPHENIRAMINE MALEATE\DEXTROMETHORPHAN HYDROBROMIDE\PHENYLEPHRINE BITARTRATE
     Indication: HYPERSENSITIVITY

REACTIONS (2)
  - Drug ineffective [None]
  - Therapeutic response unexpected [None]

NARRATIVE: CASE EVENT DATE: 20160419
